FAERS Safety Report 22011208 (Version 2)
Quarter: 2023Q1

REPORT INFORMATION
  Report Type: Spontaneous
  Country: GB (occurrence: GB)
  Receive Date: 20230220
  Receipt Date: 20230302
  Transmission Date: 20230418
  Serious: Yes (Other)
  Sender: FDA-Public Use
  Company Number: None

PATIENT
  Age: 76 Year
  Sex: Male
  Weight: 80 kg

DRUGS (6)
  1. DULAGLUTIDE [Suspect]
     Active Substance: DULAGLUTIDE
     Indication: Product used for unknown indication
     Dosage: 1.5 MG, WEEKLY (1/W)
     Route: 058
     Dates: start: 20221201, end: 20230119
  2. HUMALOG MIX75/25 [Suspect]
     Active Substance: INSULIN LISPRO
     Indication: Product used for unknown indication
     Dosage: UNK, DAILY (UP TO 15 MIN BEFORE OR SOON AFTER A MEAL)
     Route: 058
     Dates: start: 20230117, end: 20230119
  3. HUMALOG MIX75/25 [Suspect]
     Active Substance: INSULIN LISPRO
     Dosage: UNK, DAILY (UP TO 15 MIN BEFORE OR SOON AFTER A MEAL)
     Route: 058
     Dates: start: 20230119
  4. APIXABAN SPC [Concomitant]
     Indication: Product used for unknown indication
     Dosage: 5 MG, BID (UNTIL REVIEWED BY COAGULATION CLINIC)
     Dates: start: 20221230
  5. PREDNISOLONE [Concomitant]
     Active Substance: PREDNISOLONE
     Indication: Product used for unknown indication
     Dosage: 40 MG
     Dates: start: 20221229
  6. QUININE SULFATE [Concomitant]
     Active Substance: QUININE SULFATE
     Indication: Product used for unknown indication
     Dosage: 200 MG, DAILY (AT BED TIME)
     Dates: start: 20230110

REACTIONS (2)
  - Pulmonary embolism [Recovering/Resolving]
  - Chronic kidney disease [Unknown]

NARRATIVE: CASE EVENT DATE: 20221224
